FAERS Safety Report 24709841 (Version 1)
Quarter: 2024Q4

REPORT INFORMATION
  Report Type: Spontaneous
  Country: IT (occurrence: IT)
  Receive Date: 20241209
  Receipt Date: 20241209
  Transmission Date: 20250115
  Serious: Yes (Life-Threatening, Other)
  Sender: AUROBINDO
  Company Number: IT-MINISAL02-1011742

PATIENT
  Age: 35 Year
  Sex: Male

DRUGS (2)
  1. QUETIAPINE [Suspect]
     Active Substance: QUETIAPINE
     Indication: Depression
     Dosage: 300 MILLIGRAM(4 CPR)
     Route: 048
     Dates: start: 20241029, end: 20241029
  2. Flufenazina [Concomitant]
     Indication: Psychotic disorder
     Dosage: 25 MILLIGRAM PER MILLILETER
     Route: 030

REACTIONS (4)
  - Agitation [Recovering/Resolving]
  - Toxicity to various agents [Recovering/Resolving]
  - Tachycardia [Recovering/Resolving]
  - Drug abuse [Recovering/Resolving]

NARRATIVE: CASE EVENT DATE: 20241029
